FAERS Safety Report 22044611 (Version 1)
Quarter: 2023Q1

REPORT INFORMATION
  Report Type: Spontaneous
  Country: US (occurrence: US)
  Receive Date: 20230228
  Receipt Date: 20230228
  Transmission Date: 20230418
  Serious: No
  Sender: FDA-Public Use
  Company Number: US-TEVA-2023-US-2856062

PATIENT
  Sex: Female

DRUGS (1)
  1. QVAR REDIHALER [Suspect]
     Active Substance: BECLOMETHASONE DIPROPIONATE
     Indication: Product used for unknown indication
     Dosage: 80 MCG
     Route: 055

REACTIONS (6)
  - Candida infection [Unknown]
  - Gastrooesophageal reflux disease [Unknown]
  - Hormone level abnormal [Unknown]
  - Cough [Unknown]
  - COVID-19 [Unknown]
  - Thyroid disorder [Unknown]
